FAERS Safety Report 6894007-2 (Version None)
Quarter: 2010Q3

REPORT INFORMATION
  Report Type: 
  Country: None (occurrence: None)
  Receive Date: 20100802
  Receipt Date: 20100712
  Transmission Date: 20110219
  Serious: Yes (Hospitalization)
  Sender: FDA-Public Use
  Company Number: DE-RANBAXY-2010RR-36016

PATIENT
  Age: 28 Year
  Sex: Male

DRUGS (2)
  1. CEFACLOR 500MG BASICS KAPSELN [Suspect]
     Indication: SINUSITIS
     Dosage: UNK
     Dates: start: 20100710, end: 20100710
  2. SINUPRET [Concomitant]

REACTIONS (4)
  - ABDOMINAL PAIN [None]
  - MUSCLE SPASMS [None]
  - NAUSEA [None]
  - PORPHYRIA [None]
